FAERS Safety Report 5929537-0 (Version None)
Quarter: 2008Q4

REPORT INFORMATION
  Report Type: 
  Country: None (occurrence: None)
  Receive Date: 20081024
  Receipt Date: 20081016
  Transmission Date: 20090506
  Serious: Yes (Hospitalization)
  Sender: FDA-Public Use
  Company Number: B0541965A

PATIENT
  Age: 84 Year
  Sex: Female

DRUGS (6)
  1. DEROXAT [Suspect]
     Dosage: 20MG PER DAY
     Route: 048
     Dates: end: 20081001
  2. NOCTRAN [Suspect]
     Dosage: 1UNIT PER DAY
     Route: 048
     Dates: end: 20081001
  3. PRAZEPAM [Suspect]
     Dosage: 2TAB PER DAY
     Route: 048
     Dates: end: 20081001
  4. CELEBREX [Suspect]
     Dosage: 200MG PER DAY
     Route: 048
     Dates: end: 20081001
  5. PROPOFAN [Suspect]
     Dosage: 1TAB PER DAY
     Route: 048
     Dates: end: 20081001
  6. SOTALOL [Concomitant]
     Dosage: 160MG PER DAY
     Route: 065

REACTIONS (3)
  - CONFUSIONAL STATE [None]
  - MEMORY IMPAIRMENT [None]
  - SINUSITIS [None]
